FAERS Safety Report 10192539 (Version 1)
Quarter: 2014Q2

REPORT INFORMATION
  Report Type: Report from Study
  Country: CA (occurrence: CA)
  Receive Date: 20140523
  Receipt Date: 20140523
  Transmission Date: 20141212
  Serious: Yes (Other)
  Sender: FDA-Public Use
  Company Number: CA-JNJFOC-20140512655

PATIENT
  Age: 36 Year
  Sex: Male
  Weight: 105 kg

DRUGS (4)
  1. REMICADE [Suspect]
     Indication: CROHN^S DISEASE
     Route: 042
     Dates: start: 200906
  2. IMURAN [Concomitant]
     Route: 065
  3. EFFEXOR [Concomitant]
     Route: 065
  4. TYLENOL 1 [Concomitant]
     Route: 065

REACTIONS (1)
  - Cholecystitis [Not Recovered/Not Resolved]
